FAERS Safety Report 5024883-X (Version None)
Quarter: 2006Q2

REPORT INFORMATION
  Report Type: 
  Country: None (occurrence: None)
  Receive Date: 20060613
  Receipt Date: 20060601
  Transmission Date: 20061013
  Serious: Yes (Other)
  Sender: FDA-Public Use
  Company Number: US-SANOFI-SYNTHELABO-A03200603612

PATIENT
  Sex: Female
  Weight: 38.03 kg

DRUGS (3)
  1. PLAVIX [Suspect]
     Indication: ATRIAL SEPTAL DEFECT
     Route: 048
     Dates: start: 20060512, end: 20060530
  2. ASPIRIN [Concomitant]
     Route: 048
     Dates: start: 20060501
  3. LEVOXYL [Concomitant]
     Route: 048

REACTIONS (9)
  - ANXIETY [None]
  - CHEST DISCOMFORT [None]
  - DELIRIUM [None]
  - FEELING HOT [None]
  - FEELING HOT AND COLD [None]
  - HEAD DISCOMFORT [None]
  - HEADACHE [None]
  - JOINT SWELLING [None]
  - STOMACH DISCOMFORT [None]
